FAERS Safety Report 6155371-5 (Version None)
Quarter: 2009Q2

REPORT INFORMATION
  Report Type: 
  Country: None (occurrence: None)
  Receive Date: 20090409
  Receipt Date: 20080703
  Transmission Date: 20091009
  Serious: Yes (Other)
  Sender: FDA-Public Use
  Company Number: AT-S-20080056

PATIENT
  Age: 58 Year
  Sex: Female
  Weight: 56.246 kg

DRUGS (3)
  1. ESTROGEL [Suspect]
     Indication: BLOOD CALCIUM
     Dosage: 1.25 GRAMS DAILY, TRANSCUTANEOUS
     Dates: start: 20080101, end: 20080620
  2. ESTROGEL [Suspect]
     Indication: HOT FLUSH
     Dosage: 1.25 GRAMS DAILY, TRANSCUTANEOUS
     Dates: start: 20080101, end: 20080620
  3. CALCIUM [Concomitant]

REACTIONS (1)
  - RETINAL VEIN OCCLUSION [None]
